FAERS Safety Report 4267579-4 (Version None)
Quarter: 2004Q1

REPORT INFORMATION
  Report Type: 
  Country: None (occurrence: None)
  Receive Date: 20040109
  Receipt Date: 20030909
  Transmission Date: 20041129
  Serious: No
  Sender: FDA-Public Use
  Company Number: US-GLAXOSMITHKLINE-A0425179A

PATIENT
  Age: 23 Year
  Sex: Female

DRUGS (2)
  1. WELLBUTRIN [Suspect]
     Route: 048
     Dates: start: 20030809
  2. PAXIL CR [Concomitant]

REACTIONS (1)
  - DRUG INEFFECTIVE [None]
